FAERS Safety Report 7267416-X (Version None)
Quarter: 2011Q1

REPORT INFORMATION
  Report Type: 
  Country: None (occurrence: None)
  Receive Date: 20110201
  Receipt Date: 20110125
  Transmission Date: 20110831
  Serious: Yes (Hospitalization)
  Sender: FDA-Public Use
  Company Number: PL-TYCO HEALTHCARE/MALLINCKRODT-T201100116

PATIENT
  Sex: Female
  Weight: 58 kg

DRUGS (1)
  1. OPTIRAY 350 [Suspect]
     Dosage: 65 ML, SINGLE
     Route: 042
     Dates: start: 20101124, end: 20101124

REACTIONS (9)
  - THROAT IRRITATION [None]
  - DYSPNOEA [None]
  - ERYTHEMA [None]
  - HYPOAESTHESIA FACIAL [None]
  - EYELID OEDEMA [None]
  - VOMITING [None]
  - HYPOAESTHESIA [None]
  - NAUSEA [None]
  - SWELLING FACE [None]
